FAERS Safety Report 16849528 (Version 1)
Quarter: 2019Q3

REPORT INFORMATION
  Report Type: Report from Study
  Country: US (occurrence: US)
  Receive Date: 20190925
  Receipt Date: 20190925
  Transmission Date: 20191005
  Serious: Yes (Other)
  Sender: FDA-Public Use
  Company Number: US-INDICUS PHARMA-000613

PATIENT
  Age: 79 Month
  Sex: Male

DRUGS (6)
  1. SERTRALINE [Concomitant]
     Active Substance: SERTRALINE HYDROCHLORIDE
     Indication: ANXIETY
     Dosage: 4 MG QD
  2. METFORMIN [Suspect]
     Active Substance: METFORMIN HYDROCHLORIDE
     Indication: FRAGILE X SYNDROME
     Dosage: 50 MG AT DINNER AND INCREASED TO?50 MG BID
  3. MELATONIN [Concomitant]
     Active Substance: MELATONIN
     Dosage: 0.25 MG QHS
  4. GUANFACINE/GUANFACINE HYDROCHLORIDE [Concomitant]
     Indication: ATTENTION DEFICIT/HYPERACTIVITY DISORDER
     Dosage: 0.5 MG BID
  5. METHYLPHENIDATE. [Concomitant]
     Active Substance: METHYLPHENIDATE
     Indication: ATTENTION DEFICIT/HYPERACTIVITY DISORDER
  6. MINOCYCLINE/MINOCYCLINE HYDROCHLORIDE [Concomitant]
     Dosage: 25 MG QD

REACTIONS (2)
  - Generalised tonic-clonic seizure [Recovered/Resolved]
  - Off label use [Unknown]
